FAERS Safety Report 19367486 (Version 1)
Quarter: 2021Q2

REPORT INFORMATION
  Report Type: Spontaneous
  Country: US (occurrence: US)
  Receive Date: 20210603
  Receipt Date: 20210603
  Transmission Date: 20210717
  Serious: Yes (Hospitalization, Other)
  Sender: FDA-Public Use
  Company Number: US-JNJFOC-20210551206

PATIENT
  Age: 36 Year
  Sex: Female

DRUGS (1)
  1. EPOPROSTENOL SODIUM. [Suspect]
     Active Substance: EPOPROSTENOL SODIUM
     Indication: HERITABLE PULMONARY ARTERIAL HYPERTENSION
     Route: 065

REACTIONS (2)
  - Heart and lung transplant [Unknown]
  - Pulmonary arterial hypertension [Unknown]
